FAERS Safety Report 17721729 (Version 1)
Quarter: 2020Q2

REPORT INFORMATION
  Report Type: Spontaneous
  Country: US (occurrence: US)
  Receive Date: 20200429
  Receipt Date: 20200429
  Transmission Date: 20200714
  Serious: Yes (Other)
  Sender: FDA-Public Use
  Company Number: US-APOTEX-2020AP010408

PATIENT

DRUGS (2)
  1. PAXIL [Suspect]
     Active Substance: PAROXETINE HYDROCHLORIDE
     Indication: PANIC DISORDER
     Dosage: 40 MG, QD
     Route: 065
     Dates: start: 2007
  2. PAXIL [Suspect]
     Active Substance: PAROXETINE HYDROCHLORIDE
     Indication: ANXIETY

REACTIONS (10)
  - Paranoia [Unknown]
  - Suicidal ideation [Unknown]
  - Withdrawal syndrome [Unknown]
  - Anger [Unknown]
  - Autoscopy [Unknown]
  - Restlessness [Unknown]
  - Fear [Unknown]
  - Paraesthesia [Unknown]
  - Drug dependence [Unknown]
  - Mania [Unknown]
